FAERS Safety Report 5129473-6 (Version None)
Quarter: 2006Q4

REPORT INFORMATION
  Report Type: 
  Country: None (occurrence: None)
  Receive Date: 20061018
  Receipt Date: 20060928
  Transmission Date: 20070319
  Serious: Yes (Life-Threatening, Hospitalization)
  Sender: FDA-Public Use
  Company Number: JP-BAYER-200614314GDS

PATIENT
  Age: 85 Year
  Sex: Male

DRUGS (10)
  1. ADALAT [Suspect]
     Indication: HYPERTENSION
     Dosage: TOTAL DAILY DOSE: 160 MG  UNIT DOSE: 40 MG
     Route: 048
     Dates: start: 20060825, end: 20060829
  2. ADALAT [Suspect]
     Dosage: UNIT DOSE: 40 MG
     Route: 048
     Dates: start: 20050724, end: 20060824
  3. LIPITOR [Suspect]
     Indication: HYPERLIPIDAEMIA
     Dosage: TOTAL DAILY DOSE: 40 MG  UNIT DOSE: 10 MG
     Route: 048
     Dates: start: 20060825, end: 20060829
  4. LIPITOR [Suspect]
     Dosage: TOTAL DAILY DOSE: 10 MG  UNIT DOSE: 10 MG
     Route: 048
     Dates: start: 20030119, end: 20060824
  5. URINORM [Suspect]
     Indication: HYPERURICAEMIA
     Dosage: TOTAL DAILY DOSE: 200 MG  UNIT DOSE: 50 MG
     Route: 048
     Dates: start: 20060825, end: 20060829
  6. URINORM [Suspect]
     Dosage: UNIT DOSE: 50 MG
     Route: 048
     Dates: start: 20010621, end: 20060824
  7. HARNAL D [Suspect]
     Indication: BENIGN PROSTATIC HYPERPLASIA
     Dosage: TOTAL DAILY DOSE: 0.8 MG  UNIT DOSE: 0.2 MG
     Route: 048
     Dates: start: 20060825, end: 20060829
  8. HARNAL D [Suspect]
     Dosage: UNIT DOSE: 0.2 MG
     Route: 048
     Dates: start: 20020821, end: 20060824
  9. BUFFERIN [Suspect]
     Indication: CEREBROVASCULAR DISORDER
     Dosage: TOTAL DAILY DOSE: 324 MG  UNIT DOSE: 81 MG
     Route: 048
     Dates: start: 20060825, end: 20060829
  10. BUFFERIN [Suspect]
     Dosage: UNIT DOSE: 81 MG
     Route: 048
     Dates: start: 20050827, end: 20060824

REACTIONS (8)
  - AMNESIA [None]
  - ANAEMIA [None]
  - COGNITIVE DISORDER [None]
  - DUODENAL ULCER [None]
  - INTESTINAL ULCER [None]
  - MELAENA [None]
  - MULTIPLE DRUG OVERDOSE ACCIDENTAL [None]
  - WRONG DRUG ADMINISTERED [None]
